FAERS Safety Report 8192411-6 (Version None)
Quarter: 2012Q1

REPORT INFORMATION
  Report Type: 
  Country: None (occurrence: None)
  Receive Date: 20120308
  Receipt Date: 20120228
  Transmission Date: 20120608
  Serious: Yes (Hospitalization, Other)
  Sender: FDA-Public Use
  Company Number: US-BIOGENIDEC-2010BI020432

PATIENT
  Age: 47 Year
  Sex: Female
  Weight: 104 kg

DRUGS (3)
  1. AVONEX [Suspect]
     Indication: MULTIPLE SCLEROSIS
     Route: 030
     Dates: start: 19990401, end: 20030101
  2. AVONEX [Suspect]
     Route: 030
     Dates: start: 20030101
  3. AVONEX [Suspect]
     Route: 030

REACTIONS (5)
  - BREAST CANCER METASTATIC [None]
  - SLEEP APNOEA SYNDROME [None]
  - MYOCARDIAL INFARCTION [None]
  - BREAST CANCER RECURRENT [None]
  - HYPERTHYROIDISM [None]
